FAERS Safety Report 7897016-X (Version None)
Quarter: 2011Q4

REPORT INFORMATION
  Report Type: 
  Country: None (occurrence: None)
  Receive Date: 20111107
  Receipt Date: 20111103
  Transmission Date: 20120403
  Serious: Yes (Other)
  Sender: FDA-Public Use
  Company Number: US-PFIZER INC-2011269783

PATIENT
  Sex: Female

DRUGS (3)
  1. DEPO-MEDROL [Suspect]
     Indication: ARTHRALGIA
     Dosage: UNK
     Route: 014
     Dates: start: 20111029, end: 20111029
  2. LIDOCAINE [Suspect]
     Indication: ARTHRALGIA
     Dosage: UNK
     Route: 014
     Dates: start: 20111029, end: 20111029
  3. DEXAMETHASONE [Suspect]
     Indication: ARTHRALGIA
     Dosage: UNK
     Route: 014
     Dates: start: 20111029, end: 20111029

REACTIONS (4)
  - ARTHRITIS BACTERIAL [None]
  - INFECTION [None]
  - ARTHRALGIA [None]
  - SWELLING [None]
